FAERS Safety Report 8288971-7 (Version None)
Quarter: 2012Q2

REPORT INFORMATION
  Report Type: 
  Country: None (occurrence: None)
  Receive Date: 20120412
  Receipt Date: 20120328
  Transmission Date: 20120825
  Serious: No
  Sender: FDA-Public Use
  Company Number: EU-2012-10093

PATIENT
  Age: 56 Year
  Sex: Male

DRUGS (6)
  1. PLETAL [Suspect]
     Indication: PERIPHERAL ARTERIAL OCCLUSIVE DISEASE
     Dosage: ORAL
     Route: 048
     Dates: start: 20101019, end: 20111110
  2. NEBIVOLOL HCL [Concomitant]
  3. ASPIRIN [Concomitant]
  4. KERLONE (BETAXOLOL HYDROCHLORIDE) [Concomitant]
  5. BISOPROLOL FUMARATE [Concomitant]
  6. RAMIPRIL [Concomitant]

REACTIONS (5)
  - PAIN IN EXTREMITY [None]
  - SINUS TACHYCARDIA [None]
  - TREMOR [None]
  - MYALGIA [None]
  - RESTLESSNESS [None]
